FAERS Safety Report 9156741 (Version 3)
Quarter: 2013Q2

REPORT INFORMATION
  Report Type: Spontaneous
  Country: SE (occurrence: SE)
  Receive Date: 20130312
  Receipt Date: 20130423
  Transmission Date: 20140414
  Serious: Yes (Other)
  Sender: FDA-Public Use
  Company Number: SE-ELI_LILLY_AND_COMPANY-SE201303000122

PATIENT
  Age: 59 Year
  Sex: Male

DRUGS (2)
  1. CYMBALTA [Suspect]
     Dosage: 30 MG, UNKNOWN
     Route: 065
     Dates: start: 20121125, end: 20121212
  2. MEDIKINET [Concomitant]
     Dosage: UNK, UNKNOWN
     Route: 065

REACTIONS (2)
  - Anxiety [Recovered/Resolved]
  - Suicidal ideation [Recovered/Resolved]
